FAERS Safety Report 10332869 (Version 2)
Quarter: 2014Q3

REPORT INFORMATION
  Report Type: Spontaneous
  Country: US (occurrence: US)
  Receive Date: 20140722
  Receipt Date: 20140924
  Transmission Date: 20150326
  Serious: Yes (Other)
  Sender: FDA-Public Use
  Company Number: PHHY2014US088797

PATIENT
  Sex: Female

DRUGS (22)
  1. DILAUDID [Suspect]
     Active Substance: HYDROMORPHONE HYDROCHLORIDE
     Dosage: 7.502 MG, PER DAY
     Route: 037
  2. ZOFRAN [Suspect]
     Active Substance: ONDANSETRON HYDROCHLORIDE
     Dosage: 1 DF, TID
     Route: 048
  3. LEVOTHYROXINE [Suspect]
     Active Substance: LEVOTHYROXINE
     Dosage: 1 DF, QD
     Route: 048
  4. BACLOFEN INTRATHECAL [Suspect]
     Active Substance: BACLOFEN
     Indication: PAIN
     Dosage: 24.944 UG, PER DAY
     Route: 037
     Dates: end: 20140709
  5. BUMETANIDE. [Suspect]
     Active Substance: BUMETANIDE
     Dosage: 2 MG TABLET Q AM
     Route: 048
  6. PROTONIX [Suspect]
     Active Substance: PANTOPRAZOLE SODIUM
     Dosage: 1 DF, QD
     Route: 048
  7. TRIAZOLAM. [Suspect]
     Active Substance: TRIAZOLAM
     Dosage: 1 DF, QHS
     Route: 048
  8. FENOFIBRATE. [Suspect]
     Active Substance: FENOFIBRATE
     Dosage: 1 DF, QD
     Route: 048
  9. ZETIA [Suspect]
     Active Substance: EZETIMIBE
     Dosage: 1 DF, QD
     Route: 048
  10. METFORMIN [Suspect]
     Active Substance: METFORMIN HYDROCHLORIDE
     Dosage: 1 DF, BID
     Route: 048
  11. MIRALAX [Suspect]
     Active Substance: POLYETHYLENE GLYCOL 3350
     Dosage: 1 DF, PRN
     Route: 048
  12. VISTARIL [Suspect]
     Active Substance: HYDROXYZINE PAMOATE
     Dosage: 1 DF, TID
     Route: 048
  13. BACLOFEN. [Suspect]
     Active Substance: BACLOFEN
     Dosage: 10 MG TABLET 1.5 TID PRN
     Route: 048
  14. FLUOXETINE [Suspect]
     Active Substance: FLUOXETINE\FLUOXETINE HYDROCHLORIDE
     Dosage: 1 DF, QD
     Route: 048
  15. LUNESTA [Suspect]
     Active Substance: ESZOPICLONE
     Dosage: 1 DF, QHS
     Route: 048
  16. POTASSIUM [Suspect]
     Active Substance: POTASSIUM
     Dosage: 1 DF, QD
     Route: 048
  17. LEVOTHROID [Suspect]
     Active Substance: LEVOTHYROXINE SODIUM
     Dosage: 1 DF, QD
     Route: 048
  18. DILAUDID [Suspect]
     Active Substance: HYDROMORPHONE HYDROCHLORIDE
     Dosage: 9.522 MG, PER DAY
     Route: 037
  19. LASIX [Suspect]
     Active Substance: FUROSEMIDE
     Dosage: 1 DF, QD
     Route: 048
  20. XANAX [Suspect]
     Active Substance: ALPRAZOLAM
     Dosage: 1 DF, TID
     Route: 048
  21. LIPITOR [Suspect]
     Active Substance: ATORVASTATIN CALCIUM
     Dosage: 1 DF, QD
     Route: 048
  22. EXCEDRIN [Suspect]
     Active Substance: ACETAMINOPHEN\ASPIRIN\CAFFEINE
     Indication: MIGRAINE
     Dosage: UNK UKN, PRN
     Route: 048

REACTIONS (7)
  - Muscle spasms [Recovering/Resolving]
  - Back pain [Recovering/Resolving]
  - Pain [Recovering/Resolving]
  - No therapeutic response [Recovering/Resolving]
  - Somnolence [Recovering/Resolving]
  - Feeling drunk [Recovering/Resolving]
  - Performance status decreased [Recovering/Resolving]
